FAERS Safety Report 21667519 (Version 1)
Quarter: 2022Q4

REPORT INFORMATION
  Report Type: Spontaneous
  Country: US (occurrence: US)
  Receive Date: 20221201
  Receipt Date: 20221201
  Transmission Date: 20230113
  Serious: No
  Sender: FDA-Public Use
  Company Number: US-BAYER-2022A157229

PATIENT
  Age: 62 Year
  Sex: Male

DRUGS (8)
  1. ALEVE [Suspect]
     Active Substance: NAPROXEN SODIUM
  2. RITUXAN [Concomitant]
     Active Substance: RITUXIMAB
  3. ACETAMINOPHEN\HYDROCODONE [Concomitant]
     Active Substance: ACETAMINOPHEN\HYDROCODONE
  4. DILTIAZEM [Concomitant]
     Active Substance: DILTIAZEM
  5. ISOSORBIDE DINITRATE [Concomitant]
     Active Substance: ISOSORBIDE DINITRATE
  6. MORPHINE [Concomitant]
     Active Substance: MORPHINE
  7. PREDNISONE [Concomitant]
     Active Substance: PREDNISONE
  8. ACTEMRA [Concomitant]
     Active Substance: TOCILIZUMAB

REACTIONS (1)
  - Drug hypersensitivity [Unknown]
